FAERS Safety Report 6837974-5 (Version None)
Quarter: 2010Q3

REPORT INFORMATION
  Report Type: 
  Country: None (occurrence: None)
  Receive Date: 20100713
  Receipt Date: 20070529
  Transmission Date: 20110219
  Serious: Yes (Hospitalization, Other)
  Sender: FDA-Public Use
  Company Number: US-PFIZER INC-2007043685

PATIENT
  Age: 70 Year
  Sex: Female

DRUGS (10)
  1. CHANTIX [Suspect]
     Dates: start: 20070101
  2. SPIRIVA [Suspect]
     Indication: CHRONIC OBSTRUCTIVE PULMONARY DISEASE
     Dates: start: 20050101
  3. ADVAIR DISKUS 100/50 [Concomitant]
  4. OXYGEN [Concomitant]
  5. ALL OTHER THERAPEUTIC PRODUCTS [Concomitant]
  6. LISINOPRIL [Concomitant]
  7. PULMICORT [Concomitant]
  8. XOPENEX [Concomitant]
  9. LORAZEPAM [Concomitant]
  10. CLONAZEPAM [Concomitant]

REACTIONS (1)
  - DYSPNOEA [None]
